FAERS Safety Report 9433999 (Version 2)
Quarter: 2013Q3

REPORT INFORMATION
  Report Type: Report from Study
  Country: DE (occurrence: DE)
  Receive Date: 20130801
  Receipt Date: 20130918
  Transmission Date: 20140515
  Serious: Yes (Hospitalization)
  Sender: FDA-Public Use
  Company Number: DE-ROCHE-1255521

PATIENT
  Age: 65 Year
  Sex: Female
  Weight: 83.3 kg

DRUGS (5)
  1. BEVACIZUMAB [Suspect]
     Indication: COLON CANCER
     Route: 042
     Dates: start: 20130626
  2. 5-FU [Suspect]
     Indication: COLON CANCER
     Route: 040
     Dates: start: 20130626
  3. 5-FU [Suspect]
     Dosage: OVER 48 H
     Route: 041
     Dates: start: 20130626
  4. IRINOTECAN [Suspect]
     Indication: COLON CANCER
     Route: 042
     Dates: start: 20130626
  5. FOLINIC ACID [Suspect]
     Indication: COLON CANCER
     Route: 042
     Dates: start: 20130626

REACTIONS (2)
  - Renal failure [Recovered/Resolved]
  - Fracture [Recovered/Resolved]
